FAERS Safety Report 24898159 (Version 1)
Quarter: 2025Q1

REPORT INFORMATION
  Report Type: Other
  Country: GB (occurrence: GB)
  Receive Date: 20250129
  Receipt Date: 20250129
  Transmission Date: 20250409
  Serious: Yes (Other)
  Sender: ASPEN
  Company Number: None

PATIENT

DRUGS (1)
  1. DEXAMETHASONE [Suspect]
     Active Substance: DEXAMETHASONE
     Indication: Wean from ventilator
     Route: 065

REACTIONS (2)
  - Off label use [Unknown]
  - Adrenal insufficiency neonatal [Not Recovered/Not Resolved]

NARRATIVE: CASE EVENT DATE: 20241006
